FAERS Safety Report 8702683 (Version 7)
Quarter: 2014Q2

REPORT INFORMATION
  Report Type: Spontaneous
  Country: US (occurrence: US)
  Receive Date: 20120803
  Receipt Date: 20140521
  Transmission Date: 20141212
  Serious: Yes (Hospitalization, Other)
  Sender: FDA-Public Use
  Company Number: US-ASTRAZENECA-2012SE50505

PATIENT
  Age: 67 Year
  Sex: Female
  Weight: 52.2 kg

DRUGS (13)
  1. NEXIUM [Suspect]
     Indication: GASTROOESOPHAGEAL REFLUX DISEASE
     Route: 048
     Dates: start: 2009, end: 20140407
  2. NEXIUM [Suspect]
     Indication: GASTROOESOPHAGEAL REFLUX DISEASE
     Route: 048
     Dates: start: 2009, end: 20140407
  3. DIAZEPAM [Concomitant]
     Indication: STRESS
     Route: 048
  4. DIAZEPAM [Concomitant]
     Indication: STRESS
     Dosage: 1 DF, BID, PRN
     Route: 048
  5. VALIUM [Concomitant]
     Indication: EMOTIONAL DISTRESS
     Dosage: 5 MG QAM AND QPM UNK
  6. ZOLOFT [Concomitant]
     Indication: EMOTIONAL DISTRESS
     Dosage: GENERIC, 50 MG DAILY
  7. ALENDRONATE SODIUM [Concomitant]
  8. CALTRATE [Concomitant]
  9. CVS SAINT JOHNS WORT [Concomitant]
  10. HYDROCODONE ACETAMINOPHEN [Concomitant]
     Indication: PAIN
     Dosage: 5-325 MG, , 1 QID, PRN
     Route: 048
  11. INSPECT DEVI [Concomitant]
  12. LOMOTIL [Concomitant]
     Indication: DIARRHOEA
     Dosage: 2.5-0.025 MG, AS DIRECTED, EVERY 4 HRS, PRN, GENERIC
     Route: 048
  13. TYLENOL [Concomitant]
     Indication: PAIN

REACTIONS (18)
  - Neoplasm malignant [Unknown]
  - Skin disorder [Unknown]
  - Neoplasm skin [Unknown]
  - Dermatitis [Recovered/Resolved]
  - Herpes zoster [Unknown]
  - Ear disorder [Unknown]
  - Fall [Unknown]
  - Chest pain [Unknown]
  - Decreased appetite [Unknown]
  - Weight decreased [Recovering/Resolving]
  - Type V hyperlipidaemia [Unknown]
  - Irritable bowel syndrome [Unknown]
  - Gastrooesophageal reflux disease [Unknown]
  - Osteoporosis [Unknown]
  - Depression [Unknown]
  - Nausea [Unknown]
  - Drug dose omission [Unknown]
  - Intentional product misuse [Unknown]
